FAERS Safety Report 10095566 (Version 1)
Quarter: 2014Q2

REPORT INFORMATION
  Report Type: Spontaneous
  Country: JP (occurrence: JP)
  Receive Date: 20140422
  Receipt Date: 20140422
  Transmission Date: 20141212
  Serious: Yes (Hospitalization)
  Sender: FDA-Public Use
  Company Number: JP-009507513-1404JPN011757

PATIENT
  Age: 90 Year
  Sex: Male

DRUGS (2)
  1. BONALON [Suspect]
     Indication: OSTEOPOROSIS
     Dosage: 35 MG, QD
     Route: 048
     Dates: start: 20131011, end: 20140412
  2. EDIROL [Suspect]
     Indication: OSTEOPOROSIS
     Dosage: 0.5 MICROGRAM, QD
     Route: 048
     Dates: start: 20130829, end: 20140412

REACTIONS (1)
  - Nephrolithiasis [Not Recovered/Not Resolved]
